FAERS Safety Report 11965407 (Version 1)
Quarter: 2016Q1

REPORT INFORMATION
  Report Type: Spontaneous
  Country: US (occurrence: None)
  Receive Date: 20160125
  Receipt Date: 20160125
  Transmission Date: 20160526
  Serious: Yes (Hospitalization)
  Sender: FDA-Public Use
  Company Number: None

PATIENT
  Age: 80 Year
  Sex: Male

DRUGS (1)
  1. ARIPIPRAZOLE. [Suspect]
     Active Substance: ARIPIPRAZOLE
     Dosage: 9.75
     Route: 028
     Dates: start: 20151203, end: 20151203

REACTIONS (2)
  - Syncope [None]
  - Prostatic specific antigen increased [None]

NARRATIVE: CASE EVENT DATE: 20151203
